FAERS Safety Report 23957740 (Version 4)
Quarter: 2024Q3

REPORT INFORMATION
  Report Type: Spontaneous
  Country: LV (occurrence: LV)
  Receive Date: 20240610
  Receipt Date: 20240731
  Transmission Date: 20241016
  Serious: Yes (Death, Other)
  Sender: ROCHE
  Company Number: LV-ROCHE-3579095

PATIENT
  Age: 14 Year
  Sex: Male
  Weight: 35.0 kg

DRUGS (4)
  1. EVRYSDI [Suspect]
     Active Substance: RISDIPLAM
     Indication: Spinal muscular atrophy
     Route: 065
     Dates: start: 20230425, end: 20231231
  2. CALCIUM [Concomitant]
     Active Substance: CALCIUM
  3. VENTOLIN [Concomitant]
     Active Substance: ALBUTEROL SULFATE
     Dosage: 5 MG/ML
  4. PULMICORT TURBUHALER [Concomitant]
     Active Substance: BUDESONIDE
     Dosage: 0.5 MG/ML

REACTIONS (4)
  - Respiratory failure [Fatal]
  - Nausea [Unknown]
  - Pyrexia [Unknown]
  - Pneumonia [Fatal]

NARRATIVE: CASE EVENT DATE: 20231227
